FAERS Safety Report 6426008-2 (Version None)
Quarter: 2009Q4

REPORT INFORMATION
  Report Type: 
  Country: None (occurrence: None)
  Receive Date: 20091104
  Receipt Date: 20081028
  Transmission Date: 20100525
  Serious: Yes (Hospitalization, Other)
  Sender: FDA-Public Use
  Company Number: BR-RANBAXY-2008R5-19490

PATIENT

DRUGS (1)
  1. AMOXICILLIN AND CLAVULANATE POTASSIUM [Suspect]
     Indication: SINUSITIS
     Dosage: 875 MG+125 MG, BID
     Route: 048
     Dates: start: 20081022

REACTIONS (2)
  - DRUG INEFFECTIVE [None]
  - URINARY TRACT INFECTION [None]
